FAERS Safety Report 8765979 (Version 3)
Quarter: 2013Q2

REPORT INFORMATION
  Report Type: Report from Study
  Country: JP (occurrence: JP)
  Receive Date: 20120904
  Receipt Date: 20130627
  Transmission Date: 20140414
  Serious: Yes (Other)
  Sender: FDA-Public Use
  Company Number: JP-009507513-2012SP022001

PATIENT
  Age: 74 Year
  Sex: Female
  Weight: 45 kg

DRUGS (8)
  1. PEGINTERFERON ALFA-2B [Suspect]
     Indication: CHRONIC HEPATITIS C
     Dosage: 1.5 MICROGRAM PER KILOGRAM, QW
     Route: 058
     Dates: start: 20120403, end: 20120410
  2. PEGINTERFERON ALFA-2B [Suspect]
     Dosage: 1.5 MICROGRAM PER KILOGRAM, QW
     Route: 058
     Dates: start: 20120424, end: 20120425
  3. REBETOL [Suspect]
     Indication: CHRONIC HEPATITIS C
     Dosage: 400 MG, QD
     Route: 048
     Dates: start: 20120403, end: 20120412
  4. REBETOL [Suspect]
     Dosage: 400 MG, QD
     Route: 048
     Dates: start: 20120424, end: 20120424
  5. TELAVIC [Suspect]
     Indication: CHRONIC HEPATITIS C
     Dosage: 2250 MG, QD
     Route: 048
     Dates: start: 20120403, end: 20120412
  6. TELAVIC [Suspect]
     Dosage: 750 MG, QD
     Route: 048
     Dates: start: 20120424, end: 20120424
  7. FAMOTIDINE [Concomitant]
     Indication: GASTROOESOPHAGEAL REFLUX DISEASE
     Dosage: FAMOTIDINE D, DAILY DOSE UNKNOWN.  FREQUENCY:1DAY
     Route: 048
     Dates: start: 20070509
  8. LAC-B [Concomitant]
     Indication: IRRITABLE BOWEL SYNDROME
     Dosage: FORM: POR; DAILY DOSE UNKNOWN, 3 SEPARATE NO, 1 DAY
     Route: 048
     Dates: start: 20070509

REACTIONS (2)
  - Nausea [Recovered/Resolved]
  - Decreased appetite [Recovered/Resolved]
